FAERS Safety Report 9156344 (Version 1)
Quarter: 2013Q1

REPORT INFORMATION
  Report Type: Spontaneous
  Country: JP (occurrence: JP)
  Receive Date: 20130312
  Receipt Date: 20130312
  Transmission Date: 20140127
  Serious: Yes (Other)
  Sender: FDA-Public Use
  Company Number: JP-009507513-2010SP064963

PATIENT
  Age: 3 Year
  Sex: Male

DRUGS (6)
  1. TEMODAL [Suspect]
     Indication: NEUROBLASTOMA RECURRENT
     Dosage: 150 MG/M2, UNK, DAILY DOSE UNKNOWN
     Route: 048
  2. TEMODAL [Suspect]
     Indication: NEUROBLASTOMA RECURRENT
     Dosage: DAILY DOSE UNKNOWN
     Route: 041
  3. IRINOTECAN HYDROCHLORIDE [Suspect]
     Indication: NEUROBLASTOMA RECURRENT
     Dosage: 50 MG/M2, QD
     Route: 041
  4. IRINOTECAN HYDROCHLORIDE [Suspect]
     Dosage: 100 MG/M2, QD
     Route: 041
  5. IRINOTECAN HYDROCHLORIDE [Suspect]
     Dosage: 125 MG/M2, QD
     Route: 041
  6. IRINOTECAN HYDROCHLORIDE [Suspect]
     Dosage: 100 MG/M2, QD
     Route: 041

REACTIONS (13)
  - Myelodysplastic syndrome [Unknown]
  - Deafness [Unknown]
  - Red blood cell count decreased [Unknown]
  - Febrile neutropenia [Recovering/Resolving]
  - Intelligence test abnormal [Unknown]
  - Body height below normal [Unknown]
  - Blood thyroid stimulating hormone increased [Unknown]
  - Renal impairment [Unknown]
  - Platelet count decreased [Unknown]
  - Vomiting [Recovered/Resolved]
  - Diarrhoea [Unknown]
  - Aspartate aminotransferase increased [Unknown]
  - Alanine aminotransferase increased [Unknown]
